FAERS Safety Report 14036096 (Version 3)
Quarter: 2018Q2

REPORT INFORMATION
  Report Type: Report from Study
  Country: US (occurrence: US)
  Receive Date: 20171003
  Receipt Date: 20180416
  Transmission Date: 20180711
  Serious: Yes (Hospitalization, Disabling, Other)
  Sender: FDA-Public Use
  Company Number: US-TEVA-811881USA

PATIENT
  Age: 15 Year
  Sex: Female
  Weight: 79 kg

DRUGS (18)
  1. VINCRISTINE [Suspect]
     Active Substance: VINCRISTINE
     Dosage: ON DAY 43
     Route: 042
     Dates: start: 20170630, end: 20171221
  2. INCB018424 [Suspect]
     Active Substance: RUXOLITINIB
     Dosage: 180 MILLIGRAM DAILY;
     Route: 048
     Dates: start: 20170829
  3. INCB018424 [Suspect]
     Active Substance: RUXOLITINIB
     Dosage: 190 MILLIGRAM DAILY; DAY 1 OF INTERIM MAINTENANCE 2
     Route: 048
     Dates: start: 20180111
  4. THIOGUANINE [Suspect]
     Active Substance: THIOGUANINE
     Indication: ACUTE LYMPHOCYTIC LEUKAEMIA
     Dosage: 60 MG FOR 6 DAYS, 40 MG FOR 1 DAY, DAYS 29-42 WEEKLY; ORAL
     Route: 048
     Dates: start: 20171207, end: 20171220
  5. CYTARABINE. [Suspect]
     Active Substance: CYTARABINE
     Dosage: 34.3125 MILLIGRAM DAILY;
     Route: 042
     Dates: start: 20170829
  6. MERCAPTOPURINE. [Suspect]
     Active Substance: MERCAPTOPURINE
     Indication: ACUTE LYMPHOCYTIC LEUKAEMIA
     Dosage: 125 MG X2 DAYS A WEEK,1 00 MG X5 DAYS A WEEK;
     Route: 065
     Dates: start: 20170619, end: 20170726
  7. PEGASPARGASE [Suspect]
     Active Substance: PEGASPARGASE
     Dosage: DAY 43
     Route: 042
     Dates: start: 20170506, end: 20171221
  8. INCB018424 [Suspect]
     Active Substance: RUXOLITINIB
     Indication: ACUTE LYMPHOCYTIC LEUKAEMIA
     Dosage: 180 MILLIGRAM DAILY;
     Dates: start: 20170619, end: 20170726
  9. VINCRISTINE [Suspect]
     Active Substance: VINCRISTINE
     Indication: ACUTE LYMPHOCYTIC LEUKAEMIA
     Dosage: ON DAY 15, 22, 43
     Route: 042
     Dates: start: 20170503
  10. CYTARABINE. [Suspect]
     Active Substance: CYTARABINE
     Indication: ACUTE LYMPHOCYTIC LEUKAEMIA
     Dosage: 34.3125 MILLIGRAM DAILY;
     Route: 042
     Dates: start: 20170505, end: 20170726
  11. MERCAPTOPURINE. [Suspect]
     Active Substance: MERCAPTOPURINE
     Dosage: 125 MG X2 DAYS A WEEK,1 00 MG X5 DAYS A WEEK;
     Route: 065
     Dates: start: 20170829
  12. METHOTREXATE. [Suspect]
     Active Substance: METHOTREXATE
     Indication: ACUTE LYMPHOCYTIC LEUKAEMIA
     Dosage: ON DAY 1,8,15,22
     Route: 037
     Dates: start: 20170510
  13. INCB018424 [Suspect]
     Active Substance: RUXOLITINIB
     Dosage: 190 MILLIGRAM DAILY; DAYS 29-42
     Route: 048
     Dates: start: 20170619, end: 20171220
  14. VINCRISTINE [Suspect]
     Active Substance: VINCRISTINE
     Dosage: ON DAY 50 OF DELAYED INTENSIFICATION; INTRAVENOUS
     Route: 042
     Dates: start: 20180112
  15. CYTARABINE. [Suspect]
     Active Substance: CYTARABINE
     Dosage: 36 MILLIGRAM DAILY; DAYS 30-57;
     Route: 042
     Dates: start: 20170619, end: 20171217
  16. PEGASPARGASE [Suspect]
     Active Substance: PEGASPARGASE
     Dosage: DAY 2 OF INTERIM MAINTENANCE 2;INTRAVENOUS
     Route: 042
     Dates: start: 20180112
  17. CYCLOPHOSPHAMIDE. [Suspect]
     Active Substance: CYCLOPHOSPHAMIDE
     Indication: ACUTE LYMPHOCYTIC LEUKAEMIA
     Route: 042
     Dates: start: 20170719
  18. PEGASPARGASE [Suspect]
     Active Substance: PEGASPARGASE
     Indication: ACUTE LYMPHOCYTIC LEUKAEMIA
     Dosage: ON DAY 15 AND 93
     Route: 042
     Dates: start: 20170506

REACTIONS (6)
  - Bacterial infection [Recovering/Resolving]
  - Perirectal abscess [Recovered/Resolved]
  - Cellulitis [Recovering/Resolving]
  - Febrile neutropenia [Recovered/Resolved]
  - Encopresis [Recovered/Resolved]
  - Sepsis [Recovered/Resolved]

NARRATIVE: CASE EVENT DATE: 20170724
